FAERS Safety Report 16722017 (Version 5)
Quarter: 2021Q3

REPORT INFORMATION
  Report Type: Spontaneous
  Country: CA (occurrence: CA)
  Receive Date: 20190820
  Receipt Date: 20210716
  Transmission Date: 20211014
  Serious: Yes (Other)
  Sender: FDA-Public Use
  Company Number: CA-OTSUKA-2019_029651

PATIENT
  Age: 32 Year
  Sex: Female

DRUGS (25)
  1. RISPERIDONE. [Suspect]
     Active Substance: RISPERIDONE
     Indication: SCHIZOPHRENIA
     Dosage: UNK
     Route: 065
  2. ZIPRASIDONE. [Suspect]
     Active Substance: ZIPRASIDONE
     Indication: SCHIZOPHRENIA
     Dosage: UNK
     Route: 065
  3. CLOZAPINE. [Suspect]
     Active Substance: CLOZAPINE
     Indication: SCHIZOPHRENIA
     Dosage: UNK
     Route: 065
  4. ZIPRASIDONE MESILATE [Suspect]
     Active Substance: ZIPRASIDONE MESYLATE
     Indication: SCHIZOPHRENIA
     Dosage: UNK
     Route: 065
  5. PALIPERIDONE PALMITATE [Suspect]
     Active Substance: PALIPERIDONE PALMITATE
     Indication: SCHIZOPHRENIA
     Dosage: UNK
     Route: 065
  6. RISPERDAL CONSTA [Suspect]
     Active Substance: RISPERIDONE
     Indication: SCHIZOPHRENIA
     Dosage: UNK
     Route: 030
  7. ARIPIPRAZOLE. [Suspect]
     Active Substance: ARIPIPRAZOLE
     Dosage: UNK
     Route: 065
  8. FLUPENTIXOL [Suspect]
     Active Substance: FLUPENTIXOL
     Indication: SCHIZOPHRENIA
     Dosage: UNK
     Route: 065
  9. QUETIAPINE. [Suspect]
     Active Substance: QUETIAPINE
     Indication: SCHIZOPHRENIA
     Dosage: UNK
     Route: 065
  10. QUETIAPINE FUMARATE. [Suspect]
     Active Substance: QUETIAPINE FUMARATE
     Indication: SCHIZOPHRENIA
     Dosage: UNK
     Route: 065
  11. ZIPRASIDONE HYDROCHLORIDE. [Suspect]
     Active Substance: ZIPRASIDONE HYDROCHLORIDE
     Indication: SCHIZOPHRENIA
     Dosage: UNK
     Route: 065
  12. INVEGA [Suspect]
     Active Substance: PALIPERIDONE
     Indication: SCHIZOPHRENIA
     Dosage: UNK
     Route: 065
  13. ABILIFY MAINTENA [Suspect]
     Active Substance: ARIPIPRAZOLE
     Indication: SCHIZOPHRENIA
     Dosage: UNK
     Route: 065
  14. LATUDA [Suspect]
     Active Substance: LURASIDONE HYDROCHLORIDE
     Indication: PRODUCT USED FOR UNKNOWN INDICATION
     Dosage: 1 DF
     Route: 065
  15. ZUCLOPENTHIXOL ACETATE [Suspect]
     Active Substance: ZUCLOPENTHIXOL ACETATE
     Indication: SCHIZOPHRENIA
     Dosage: UNK
     Route: 065
  16. ZYPREXA [Suspect]
     Active Substance: OLANZAPINE
     Indication: SCHIZOPHRENIA
     Dosage: UNK
     Route: 065
  17. RISPERDAL [Concomitant]
     Active Substance: RISPERIDONE
     Indication: SCHIZOPHRENIA
     Dosage: UNK
     Route: 065
  18. ARIPIPRAZOLE. [Suspect]
     Active Substance: ARIPIPRAZOLE
     Indication: SCHIZOPHRENIA
     Dosage: 1 DF, UNK
     Route: 065
  19. LATUDA [Suspect]
     Active Substance: LURASIDONE HYDROCHLORIDE
     Dosage: UNK
     Route: 065
  20. LURASIDONE HYDROCHLORIDE. [Suspect]
     Active Substance: LURASIDONE HYDROCHLORIDE
     Indication: SCHIZOPHRENIA
     Dosage: 1 DF, UNK
     Route: 065
  21. FLUPENTIXOL DIHYDROCHLORIDE [Suspect]
     Active Substance: FLUPENTIXOL DIHYDROCHLORIDE
     Indication: SCHIZOPHRENIA
     Dosage: UNK
     Route: 065
  22. OLANZAPINE. [Suspect]
     Active Substance: OLANZAPINE
     Indication: SCHIZOPHRENIA
     Dosage: UNK
     Route: 065
  23. PALIPERIDONE. [Suspect]
     Active Substance: PALIPERIDONE
     Indication: SCHIZOPHRENIA
     Dosage: UNK
     Route: 065
  24. SAPHRIS [Suspect]
     Active Substance: ASENAPINE MALEATE
     Indication: SCHIZOPHRENIA
     Dosage: UNK
     Route: 065
  25. ZUCLOPENTHIXOL DECANOATE [Suspect]
     Active Substance: ZUCLOPENTHIXOL DECANOATE
     Indication: SCHIZOPHRENIA
     Dosage: UNK
     Route: 065

REACTIONS (14)
  - Personality change [Unknown]
  - Schizophrenia [Unknown]
  - Adverse drug reaction [Unknown]
  - Metabolic disorder [Unknown]
  - Blood prolactin abnormal [Unknown]
  - Drug ineffective [Unknown]
  - Sexual dysfunction [Unknown]
  - Anosognosia [Unknown]
  - Sedation [Unknown]
  - Dystonia [Unknown]
  - Suicide attempt [Unknown]
  - Blood glucose increased [Unknown]
  - Disturbance in social behaviour [Unknown]
  - Dyskinesia [Unknown]
